FAERS Safety Report 8203933-3 (Version None)
Quarter: 2012Q1

REPORT INFORMATION
  Report Type: 
  Country: None (occurrence: None)
  Receive Date: 20120313
  Receipt Date: 20120307
  Transmission Date: 20120608
  Serious: Yes (Death)
  Sender: FDA-Public Use
  Company Number: US-SANOFI-AVENTIS-2012SA015637

PATIENT
  Age: 93 Year
  Sex: Male

DRUGS (1)
  1. PLAVIX [Suspect]
     Dates: start: 20050101, end: 20080501

REACTIONS (2)
  - AORTIC STENOSIS [None]
  - RASH MACULAR [None]
